FAERS Safety Report 11343783 (Version 1)
Quarter: 2015Q3

REPORT INFORMATION
  Report Type: Spontaneous
  Country: US (occurrence: None)
  Receive Date: 20150804
  Receipt Date: 20150804
  Transmission Date: 20151125
  Serious: No
  Sender: FDA-Public Use
  Company Number: None

PATIENT
  Age: 40 Year
  Sex: Male

DRUGS (1)
  1. TECFIDERA [Suspect]
     Active Substance: DIMETHYL FUMARATE
     Indication: MULTIPLE SCLEROSIS
     Route: 048
     Dates: start: 20150514

REACTIONS (5)
  - Asthenia [None]
  - Pain [None]
  - Malaise [None]
  - Multiple sclerosis [None]
  - Fatigue [None]

NARRATIVE: CASE EVENT DATE: 20150801
